FAERS Safety Report 8053912-4 (Version None)
Quarter: 2012Q1

REPORT INFORMATION
  Report Type: 
  Country: None (occurrence: None)
  Receive Date: 20120118
  Receipt Date: 20120106
  Transmission Date: 20120608
  Serious: Yes (Other)
  Sender: FDA-Public Use
  Company Number: US-ELI_LILLY_AND_COMPANY-US201201002499

PATIENT
  Sex: Female

DRUGS (4)
  1. EFFIENT [Suspect]
     Dosage: UNK, UNKNOWN
  2. COUMADIN [Concomitant]
  3. INTEGRILIN [Concomitant]
  4. EFFIENT [Suspect]
     Indication: THROMBOSIS IN DEVICE
     Dosage: UNK, LOADING DOSE

REACTIONS (1)
  - THROMBOTIC STROKE [None]
